FAERS Safety Report 7734131-5 (Version None)
Quarter: 2011Q3

REPORT INFORMATION
  Report Type: 
  Country: None (occurrence: None)
  Receive Date: 20110906
  Receipt Date: 20110906
  Transmission Date: 20111222
  Serious: Yes (Hospitalization)
  Sender: FDA-Public Use
  Company Number: None

PATIENT
  Age: 56 Year
  Sex: Male
  Weight: 159.8 kg

DRUGS (1)
  1. DICLOFENAC SODIUM [Suspect]
     Dosage: 150 MG BID PO
     Route: 048
     Dates: start: 20101015, end: 20110714

REACTIONS (9)
  - CHRONIC OBSTRUCTIVE PULMONARY DISEASE [None]
  - FATIGUE [None]
  - DYSPNOEA [None]
  - OEDEMA PERIPHERAL [None]
  - RENAL FAILURE ACUTE [None]
  - ASTHENIA [None]
  - CHEST DISCOMFORT [None]
  - ANAEMIA [None]
  - CONDITION AGGRAVATED [None]
